APPROVED DRUG PRODUCT: POVAN
Active Ingredient: PYRVINIUM PAMOATE
Strength: EQ 50MG BASE
Dosage Form/Route: TABLET;ORAL
Application: N012485 | Product #002
Applicant: PARKE DAVIS DIV WARNER LAMBERT CO
Approved: Approved Prior to Jan 1, 1982 | RLD: No | RS: No | Type: DISCN